FAERS Safety Report 5530911-5 (Version None)
Quarter: 2007Q4

REPORT INFORMATION
  Report Type: 
  Country: None (occurrence: None)
  Receive Date: 20071130
  Receipt Date: 20071126
  Transmission Date: 20080405
  Serious: Yes (Death, Other)
  Sender: FDA-Public Use
  Company Number: GB-ABBOTT-07P-167-0426035-00

PATIENT
  Sex: Female
  Weight: 79 kg

DRUGS (14)
  1. HUMIRA [Suspect]
     Indication: RHEUMATOID ARTHRITIS
     Route: 058
     Dates: start: 20050510, end: 20051011
  2. LEFLUNOMIDE [Concomitant]
     Indication: DRUG USE FOR UNKNOWN INDICATION
  3. PREDNISOLONE [Concomitant]
     Indication: DRUG USE FOR UNKNOWN INDICATION
  4. ATENOLOL [Concomitant]
     Indication: DRUG USE FOR UNKNOWN INDICATION
  5. CALCIUM [Concomitant]
     Indication: DRUG USE FOR UNKNOWN INDICATION
  6. ALENDRONATE SODIUM [Concomitant]
     Indication: DRUG USE FOR UNKNOWN INDICATION
  7. FUROSEMIDE [Concomitant]
     Indication: DRUG USE FOR UNKNOWN INDICATION
  8. GABAPENTIN [Concomitant]
     Indication: DRUG USE FOR UNKNOWN INDICATION
  9. KLIOGEST [Concomitant]
     Indication: DRUG USE FOR UNKNOWN INDICATION
  10. MORPHINE SULFATE [Concomitant]
     Indication: DRUG USE FOR UNKNOWN INDICATION
  11. MORPHINE SULFATE [Concomitant]
  12. RANITIDINE HCL [Concomitant]
     Indication: DRUG USE FOR UNKNOWN INDICATION
  13. DICLOFENAC SODIUM [Concomitant]
     Indication: DRUG USE FOR UNKNOWN INDICATION
  14. LATANOPROST [Concomitant]
     Indication: DRUG USE FOR UNKNOWN INDICATION

REACTIONS (3)
  - CEREBROVASCULAR ACCIDENT [None]
  - POST PROCEDURAL COMPLICATION [None]
  - SURGERY [None]
